FAERS Safety Report 5218676-8 (Version None)
Quarter: 2007Q1

REPORT INFORMATION
  Report Type: 
  Country: None (occurrence: None)
  Receive Date: 20070122
  Receipt Date: 20070117
  Transmission Date: 20070707
  Serious: Yes (Death)
  Sender: FDA-Public Use
  Company Number: 163-21880-06121240

PATIENT
  Age: 36 Year
  Sex: Female

DRUGS (1)
  1. REVLIMID [Suspect]
     Indication: MULTIPLE MYELOMA
     Dosage: 25MG - 10MG, DAILY, ORAL
     Route: 048
     Dates: start: 20060619, end: 20061201

REACTIONS (1)
  - PNEUMONIA [None]
